FAERS Safety Report 10535386 (Version 1)
Quarter: 2014Q4

REPORT INFORMATION
  Report Type: Spontaneous
  Country: JP (occurrence: JP)
  Receive Date: 20141022
  Receipt Date: 20141022
  Transmission Date: 20150529
  Serious: Yes (Other)
  Sender: FDA-Public Use
  Company Number: PHHY2014JP137665

PATIENT
  Age: 1 Year
  Sex: Female

DRUGS (2)
  1. NEORAL [Suspect]
     Active Substance: CYCLOSPORINE
     Indication: KAWASAKI^S DISEASE
     Dosage: UKN
     Route: 048
  2. NEORAL [Suspect]
     Active Substance: CYCLOSPORINE
     Indication: OFF LABEL USE

REACTIONS (3)
  - Rash [Unknown]
  - Condition aggravated [Unknown]
  - Kawasaki^s disease [Unknown]
